FAERS Safety Report 23758443 (Version 1)
Quarter: 2024Q2

REPORT INFORMATION
  Report Type: Spontaneous
  Country: CN (occurrence: CN)
  Receive Date: 20240418
  Receipt Date: 20240418
  Transmission Date: 20240716
  Serious: Yes (Other)
  Sender: FDA-Public Use
  Company Number: CN-PAIPHARMA-2024-CN-000113

PATIENT
  Age: 22 Year
  Sex: Male

DRUGS (3)
  1. CYCLOSPORINE [Suspect]
     Active Substance: CYCLOSPORINE
     Indication: Immune thrombocytopenia
     Dosage: 100 MG TWICE DAILY
     Route: 048
  2. ELTROMBOPAG [Suspect]
     Active Substance: ELTROMBOPAG
     Indication: Immune thrombocytopenia
     Dosage: 50 MG DAILY
  3. DANAZOL [Concomitant]
     Active Substance: DANAZOL
     Dosage: 200 MG DAILY

REACTIONS (1)
  - Cerebral infarction [Unknown]
